FAERS Safety Report 24756460 (Version 1)
Quarter: 2024Q4

REPORT INFORMATION
  Report Type: Report from Study
  Country: US (occurrence: US)
  Receive Date: 20241220
  Receipt Date: 20241220
  Transmission Date: 20250115
  Serious: Yes (Hospitalization)
  Sender: JAZZ
  Company Number: US-JAZZ PHARMACEUTICALS-2024-US-024103

PATIENT
  Sex: Female

DRUGS (1)
  1. EPIDIOLEX [Suspect]
     Active Substance: CANNABIDIOL
     Indication: Idiopathic generalised epilepsy
     Dosage: 4 MILLILITER, BID GTUBE
     Dates: start: 202305

REACTIONS (2)
  - Hospitalisation [Unknown]
  - Emergency care [Unknown]

NARRATIVE: CASE EVENT DATE: 20240101
